FAERS Safety Report 7798558-8 (Version None)
Quarter: 2011Q4

REPORT INFORMATION
  Report Type: 
  Country: None (occurrence: None)
  Receive Date: 20111005
  Receipt Date: 20110930
  Transmission Date: 20120403
  Serious: Yes (Other)
  Sender: FDA-Public Use
  Company Number: FR-MERCK-1110FRA00006

PATIENT
  Age: 47 Year
  Sex: Male

DRUGS (10)
  1. ISENTRESS [Suspect]
     Indication: HIV INFECTION
     Route: 048
     Dates: start: 20110515
  2. TRUVADA [Suspect]
     Route: 048
     Dates: start: 20110515, end: 20110825
  3. ATOVAQUONE [Concomitant]
     Route: 065
     Dates: start: 20110701
  4. ESOMEPRAZOLE MAGNESIUM [Concomitant]
     Route: 065
  5. VALPROATE SODIUM AND VALPROIC ACID [Concomitant]
     Route: 065
  6. SULFAMETHOXAZOLE AND TRIMETHOPRIM [Concomitant]
     Route: 065
     Dates: start: 20110501, end: 20110701
  7. ENOXAPARIN SODIUM [Concomitant]
     Route: 065
  8. LEVETIRACETAM [Concomitant]
     Route: 065
     Dates: start: 20110501
  9. VALGANCICLOVIR HYDROCHLORIDE [Concomitant]
     Route: 065
     Dates: start: 20110601
  10. CARBOHYDRATES (UNSPECIFIED) AND FAT (UNSPECIFIED) AND MINERALS (UNSPEC [Concomitant]
     Route: 065
     Dates: start: 20110901

REACTIONS (2)
  - POLYDIPSIA [None]
  - POLYURIA [None]
